FAERS Safety Report 6332245-8 (Version None)
Quarter: 2009Q3

REPORT INFORMATION
  Report Type: 
  Country: None (occurrence: None)
  Receive Date: 20090827
  Receipt Date: 20090827
  Transmission Date: 20100115
  Serious: Yes (Hospitalization)
  Sender: FDA-Public Use
  Company Number: None

PATIENT
  Age: 82 Year
  Sex: Male

DRUGS (2)
  1. ASPIRIN [Suspect]
     Indication: CORONARY ARTERY DISEASE
     Dates: start: 20050404, end: 20090101
  2. ASPIRIN [Suspect]
     Indication: PROPHYLAXIS
     Dates: start: 20050404, end: 20090101

REACTIONS (1)
  - GASTRIC HAEMORRHAGE [None]
